FAERS Safety Report 25900746 (Version 1)
Quarter: 2025Q4

REPORT INFORMATION
  Report Type: Spontaneous
  Country: US (occurrence: US)
  Receive Date: 20251009
  Receipt Date: 20251009
  Transmission Date: 20260117
  Serious: Yes (Other)
  Sender: AUROBINDO
  Company Number: US-MLMSERVICE-20250922-PI652957-00117-1

PATIENT
  Age: 26 Year
  Sex: Male

DRUGS (2)
  1. DEXAMETHASONE [Suspect]
     Active Substance: DEXAMETHASONE
     Indication: Vasogenic cerebral oedema
     Dosage: LOW-DOSE STEROIDS FOR ABOUT 3 MONTHS WHICH WERE THEN TAPERED OFF,
     Route: 065
  2. DIETARY SUPPLEMENT\HERBALS\INDIAN FRANKINCENSE [Concomitant]
     Active Substance: DIETARY SUPPLEMENT\HERBALS\INDIAN FRANKINCENSE
     Indication: Product used for unknown indication
     Dosage: 4800 MILLIGRAM, DAILY
     Route: 065

REACTIONS (3)
  - Psychotic disorder [Recovered/Resolved]
  - Treatment failure [Unknown]
  - Weight increased [Unknown]
